FAERS Safety Report 5776494-6 (Version None)
Quarter: 2008Q2

REPORT INFORMATION
  Report Type: 
  Country: None (occurrence: None)
  Receive Date: 20080618
  Receipt Date: 20080609
  Transmission Date: 20081010
  Serious: Yes (Death, Other)
  Sender: FDA-Public Use
  Company Number: FR-ELI_LILLY_AND_COMPANY-FR200805004132

PATIENT
  Age: 67 Year
  Sex: Male
  Weight: 78 kg

DRUGS (4)
  1. PEMETREXED [Suspect]
     Dosage: 945 MG, UNKNOWN
     Route: 042
     Dates: start: 20071207, end: 20071228
  2. FOLIC ACID [Concomitant]
     Indication: VITAMIN SUPPLEMENTATION
  3. VITAMIN B-12 [Concomitant]
     Indication: VITAMIN SUPPLEMENTATION
  4. DEXAMETHASONE TAB [Concomitant]
     Indication: PROPHYLAXIS

REACTIONS (2)
  - GENERAL PHYSICAL HEALTH DETERIORATION [None]
  - RESPIRATORY FAILURE [None]
